FAERS Safety Report 5159733-4 (Version None)
Quarter: 2006Q4

REPORT INFORMATION
  Report Type: 
  Country: None (occurrence: None)
  Receive Date: 20061129
  Receipt Date: 20051019
  Transmission Date: 20070319
  Serious: No
  Sender: FDA-Public Use
  Company Number: 2005/03972

PATIENT
  Age: 58 Year
  Sex: Female
  Weight: 65.9 kg

DRUGS (4)
  1. BUPROPION HCL [Suspect]
     Indication: DEPRESSION
     Dosage: 200MG IN THE MORNING
     Route: 048
     Dates: start: 20030401
  2. ESTRACE [Concomitant]
     Indication: HORMONE REPLACEMENT THERAPY
     Dosage: 1.5MG PER DAY
     Route: 048
  3. VITAMINS [Concomitant]
     Dosage: 1TAB PER DAY
     Route: 048
  4. MOTRIN [Concomitant]
     Indication: HEADACHE
     Route: 048

REACTIONS (3)
  - DRUG ADMINISTRATION ERROR [None]
  - DRUG INEFFECTIVE [None]
  - MEDICATION RESIDUE [None]
